FAERS Safety Report 25784768 (Version 1)
Quarter: 2025Q3

REPORT INFORMATION
  Report Type: Spontaneous
  Country: US (occurrence: US)
  Receive Date: 20250910
  Receipt Date: 20250910
  Transmission Date: 20251021
  Serious: No
  Sender: JOHNSON AND JOHNSON
  Company Number: US-JNJFOC-20250906102

PATIENT
  Age: 66 Year
  Sex: Female

DRUGS (2)
  1. SPRAVATO [Suspect]
     Active Substance: ESKETAMINE
     Indication: Product used for unknown indication
     Dosage: EVERY WEEK ON TUESDAYS
     Route: 045
  2. SPRAVATO [Suspect]
     Active Substance: ESKETAMINE
     Route: 045
     Dates: start: 202505

REACTIONS (6)
  - Dysarthria [Unknown]
  - Drug monitoring procedure incorrectly performed [Unknown]
  - Fear [Unknown]
  - Depressed mood [Unknown]
  - Feeling drunk [Unknown]
  - Gait disturbance [Unknown]
